FAERS Safety Report 4588369-9 (Version None)
Quarter: 2005Q1

REPORT INFORMATION
  Report Type: 
  Country: None (occurrence: None)
  Receive Date: 20050216
  Receipt Date: 20041109
  Transmission Date: 20050727
  Serious: Yes (Hospitalization)
  Sender: FDA-Public Use
  Company Number: 2004SP000279

PATIENT
  Sex: Female

DRUGS (1)
  1. XOPENEX [Suspect]
     Dosage: 0.31 MG/3 ML; INHALATION
     Route: 055

REACTIONS (3)
  - DYSPNOEA [None]
  - HOSPITALISATION [None]
  - MEDICATION ERROR [None]
